FAERS Safety Report 21853163 (Version 1)
Quarter: 2023Q1

REPORT INFORMATION
  Report Type: Spontaneous
  Country: US (occurrence: US)
  Receive Date: 20230112
  Receipt Date: 20230112
  Transmission Date: 20230418
  Serious: Yes (Other)
  Sender: FDA-Public Use
  Company Number: US-STRIDES ARCOLAB LIMITED-2023SP000426

PATIENT
  Age: 70 Year
  Sex: Female

DRUGS (2)
  1. POLYETHYLENE GLYCOL 3350 [Suspect]
     Active Substance: POLYETHYLENE GLYCOL 3350
     Indication: Bowel preparation
     Dosage: UNK
     Route: 048
  2. POLYETHYLENE GLYCOL 3350 [Suspect]
     Active Substance: POLYETHYLENE GLYCOL 3350
     Indication: Colonoscopy

REACTIONS (3)
  - Crystal nephropathy [Recovered/Resolved]
  - Chronic kidney disease [Recovered/Resolved]
  - Condition aggravated [Recovered/Resolved]
